FAERS Safety Report 8267727-5 (Version None)
Quarter: 2012Q2

REPORT INFORMATION
  Report Type: 
  Country: None (occurrence: None)
  Receive Date: 20120409
  Receipt Date: 20120402
  Transmission Date: 20120825
  Serious: Yes (Hospitalization)
  Sender: FDA-Public Use
  Company Number: US-JNJFOC-20120400778

PATIENT
  Sex: Female

DRUGS (2)
  1. NUCYNTA [Suspect]
     Indication: FIBROMYALGIA
     Route: 065
  2. CELEXA [Concomitant]
     Indication: DEPRESSION
     Dosage: 20 MG OR 40 MG
     Route: 065

REACTIONS (2)
  - MENTAL DISORDER [None]
  - SEPSIS [None]
